FAERS Safety Report 5258959-9 (Version None)
Quarter: 2007Q1

REPORT INFORMATION
  Report Type: 
  Country: None (occurrence: None)
  Receive Date: 20070308
  Receipt Date: 20070222
  Transmission Date: 20070707
  Serious: Yes (Death, Hospitalization)
  Sender: FDA-Public Use
  Company Number: SE-ROCHE-483906

PATIENT
  Age: 61 Year
  Sex: Male

DRUGS (9)
  1. CYMEVENE [Suspect]
     Indication: CYTOMEGALOVIRUS INFECTION
     Dosage: FORM REPORTED AS POWDER FOR SOLUTION FOR INJECTION. DOSAGE REGIMEN REPORTED AS 250 MG.
     Route: 042
     Dates: start: 20001017, end: 20001026
  2. URSO FALK [Concomitant]
  3. PROGRAF [Concomitant]
  4. MERONEM [Concomitant]
  5. PREDNISOLONE [Concomitant]
  6. FORTUM [Concomitant]
  7. LOSEC [Concomitant]
  8. AMBISOME [Concomitant]
  9. VANCOMYCIN HYDROCHLORIDE [Concomitant]

REACTIONS (6)
  - ACIDOSIS [None]
  - CHOLANGITIS SUPPURATIVE [None]
  - HYPOTENSION [None]
  - ISCHAEMIA [None]
  - LIVER TRANSPLANT [None]
  - SURGICAL PROCEDURE REPEATED [None]
